FAERS Safety Report 9049955 (Version 2)
Quarter: 2013Q1

REPORT INFORMATION
  Report Type: Spontaneous
  Country: DE (occurrence: DE)
  Receive Date: 20130205
  Receipt Date: 20130321
  Transmission Date: 20140127
  Serious: Yes (Death)
  Sender: FDA-Public Use
  Company Number: DE-ROCHE-1187809

PATIENT
  Age: 49 None
  Sex: Female
  Weight: 70 kg

DRUGS (11)
  1. TOCILIZUMAB [Suspect]
     Indication: RHEUMATOID ARTHRITIS
     Dosage: 540 MG
     Route: 065
     Dates: start: 20110804
  2. TOCILIZUMAB [Suspect]
     Route: 065
     Dates: start: 20111124
  3. TOCILIZUMAB [Suspect]
     Route: 065
     Dates: start: 20111222
  4. TOCILIZUMAB [Suspect]
     Route: 065
     Dates: start: 20120119
  5. TOCILIZUMAB [Suspect]
     Route: 065
     Dates: start: 20120427
  6. PRAVASTATIN [Concomitant]
     Route: 048
  7. RAMIPRIL [Concomitant]
     Route: 048
  8. METO-SUCCINAT [Concomitant]
     Route: 048
  9. ASS [Concomitant]
     Route: 048
  10. INSUMAN RAPID [Concomitant]
     Route: 058
  11. METFORMIN [Concomitant]
     Dosage: 1-1/2-1
     Route: 048

REACTIONS (2)
  - Myocardial infarction [Fatal]
  - Myosclerosis [Recovered/Resolved]
